FAERS Safety Report 10514971 (Version 1)
Quarter: 2014Q4

REPORT INFORMATION
  Report Type: Spontaneous
  Country: US (occurrence: US)
  Receive Date: 20141013
  Receipt Date: 20141013
  Transmission Date: 20150528
  Serious: Yes (Other)
  Sender: FDA-Public Use
  Company Number: PHEH2014US020040

PATIENT
  Sex: Female

DRUGS (2)
  1. RITALIN [Suspect]
     Active Substance: METHYLPHENIDATE HYDROCHLORIDE
     Indication: PRODUCT USED FOR UNKNOWN INDICATION
     Dosage: UNK (CRUSHES IT UP AND SNORTS IT)
     Route: 065
  2. COCAINE [Concomitant]
     Active Substance: COCAINE
     Dosage: UNK UKN, UNK

REACTIONS (2)
  - Wrong technique in drug usage process [Unknown]
  - Drug abuse [Unknown]
